FAERS Safety Report 4503029-8 (Version None)
Quarter: 2004Q4

REPORT INFORMATION
  Report Type: 
  Country: None (occurrence: None)
  Receive Date: 20041112
  Receipt Date: 20041027
  Transmission Date: 20050328
  Serious: Yes (Hospitalization)
  Sender: FDA-Public Use
  Company Number: 2004IM000924

PATIENT
  Age: 50 Year
  Sex: Female

DRUGS (1)
  1. INFERGEN [Suspect]
     Indication: HEPATITIS C
     Dosage: 9 UG; TIW; SUBCUTANEOUS
     Route: 058
     Dates: start: 20040507, end: 20040830

REACTIONS (4)
  - DIASTOLIC HYPERTENSION [None]
  - HEADACHE [None]
  - STATUS EPILEPTICUS [None]
  - VOMITING [None]
